FAERS Safety Report 4802441-7 (Version None)
Quarter: 2005Q4

REPORT INFORMATION
  Report Type: 
  Country: None (occurrence: None)
  Receive Date: 20051014
  Receipt Date: 20041202
  Transmission Date: 20060501
  Serious: Yes (Other)
  Sender: FDA-Public Use
  Company Number: 2004078031

PATIENT
  Age: 42 Year
  Sex: Female
  Weight: 77.1115 kg

DRUGS (7)
  1. NEURONTIN [Suspect]
     Indication: MUSCLE SPASMS
     Dosage: 300 MG (100 MG, 3 IN 1 D) ORAL
     Route: 048
     Dates: start: 20030101
  2. OXYCODONE HCL [Concomitant]
  3. OXYCODONE [Concomitant]
  4. METHOCARBAMOL [Concomitant]
  5. AMITRIPTYLINE HCL [Concomitant]
  6. SENNA FRUIT [Concomitant]
  7. IBUPROFEN [Concomitant]

REACTIONS (3)
  - DEPRESSION [None]
  - SUICIDAL IDEATION [None]
  - SUICIDE ATTEMPT [None]
